FAERS Safety Report 6194132-8 (Version None)
Quarter: 2009Q2

REPORT INFORMATION
  Report Type: 
  Country: None (occurrence: None)
  Receive Date: 20090518
  Receipt Date: 20090511
  Transmission Date: 20091009
  Serious: Yes (Other)
  Sender: FDA-Public Use
  Company Number: US-JNJCH-2009013133

PATIENT
  Age: 50 Year
  Sex: Male
  Weight: 77.1 kg

DRUGS (4)
  1. ZYRTEC [Suspect]
     Indication: HYPERSENSITIVITY
     Dosage: TEXT:ONE 10 MG ONCE
     Route: 048
     Dates: start: 20090510, end: 20090510
  2. PRAVASTATIN [Concomitant]
     Indication: DRUG USE FOR UNKNOWN INDICATION
     Dosage: TEXT:40 MG 1X
     Route: 065
  3. ADVAIR HFA [Concomitant]
     Indication: DRUG USE FOR UNKNOWN INDICATION
     Dosage: TEXT:UNSPECIFIED
     Route: 065
  4. CITALOPRAM HYDROBROMIDE [Concomitant]
     Indication: DRUG USE FOR UNKNOWN INDICATION
     Dosage: TEXT:40MG 1X
     Route: 065

REACTIONS (6)
  - HEADACHE [None]
  - LOSS OF CONSCIOUSNESS [None]
  - PRURITUS [None]
  - PYREXIA [None]
  - RASH [None]
  - VOMITING [None]
